FAERS Safety Report 5939054-X (Version None)
Quarter: 2008Q4

REPORT INFORMATION
  Report Type: 
  Country: None (occurrence: None)
  Receive Date: 20081103
  Receipt Date: 20081030
  Transmission Date: 20090506
  Serious: Yes (Other)
  Sender: FDA-Public Use
  Company Number: A0754640A

PATIENT
  Age: 56 Year
  Sex: Male

DRUGS (2)
  1. NICORETTE [Suspect]
     Indication: SMOKING CESSATION THERAPY
     Dosage: 20GUM PER DAY
     Route: 002
     Dates: start: 20080401
  2. NO CONCURRENT MEDICATION [Concomitant]

REACTIONS (2)
  - COUGH [None]
  - HYPOTHYROIDISM [None]
